FAERS Safety Report 9253271 (Version 1)
Quarter: 2013Q2

REPORT INFORMATION
  Report Type: Spontaneous
  Country: CO (occurrence: CO)
  Receive Date: 20130424
  Receipt Date: 20130424
  Transmission Date: 20140414
  Serious: Yes (Hospitalization, Other)
  Sender: FDA-Public Use
  Company Number: CO-ELI_LILLY_AND_COMPANY-CO201304005682

PATIENT
  Age: 52 Year
  Sex: Male

DRUGS (2)
  1. ALIMTA [Suspect]
     Indication: PLEURAL MESOTHELIOMA MALIGNANT
     Dosage: 500 MG/M2, UNK
     Route: 042
  2. GEMZAR [Suspect]
     Indication: PLEURAL MESOTHELIOMA MALIGNANT

REACTIONS (4)
  - Chemical burn of gastrointestinal tract [Unknown]
  - Colitis ischaemic [Unknown]
  - Malignant neoplasm progression [Unknown]
  - Off label use [Unknown]
